FAERS Safety Report 15686734 (Version 3)
Quarter: 2019Q1

REPORT INFORMATION
  Report Type: Spontaneous
  Country: PE (occurrence: PE)
  Receive Date: 20181204
  Receipt Date: 20190122
  Transmission Date: 20190417
  Serious: Yes (Hospitalization, Other)
  Sender: FDA-Public Use
  Company Number: PE-B.I. PHARMACEUTICALS,INC./RIDGEFIELD-2018-BI-057939

PATIENT
  Age: 36 Year
  Sex: Female

DRUGS (1)
  1. PRADAXA [Suspect]
     Active Substance: DABIGATRAN ETEXILATE MESYLATE
     Indication: VENOUS THROMBOSIS
     Route: 048
     Dates: start: 201807, end: 20181127

REACTIONS (1)
  - Acute abdomen [Unknown]

NARRATIVE: CASE EVENT DATE: 20181128
